FAERS Safety Report 9551280 (Version 5)
Quarter: 2014Q1

REPORT INFORMATION
  Report Type: Spontaneous
  Country: CA (occurrence: CA)
  Receive Date: 20130925
  Receipt Date: 20140124
  Transmission Date: 20141002
  Serious: Yes (Other)
  Sender: FDA-Public Use
  Company Number: CA-ROCHE-1278745

PATIENT
  Age: 32 Year
  Sex: Female

DRUGS (4)
  1. XOLAIR [Suspect]
     Indication: ASTHMA
     Route: 058
     Dates: start: 20120305
  2. XOLAIR [Suspect]
     Route: 058
  3. SPIRIVA [Concomitant]
  4. VENTOLINE [Concomitant]

REACTIONS (15)
  - Complex regional pain syndrome [Unknown]
  - Ovarian cyst [Unknown]
  - Asthma [Unknown]
  - Influenza [Recovering/Resolving]
  - Chest pain [Recovering/Resolving]
  - Sinusitis [Unknown]
  - Seasonal allergy [Unknown]
  - Migraine [Recovering/Resolving]
  - Vomiting [Recovered/Resolved]
  - Headache [Not Recovered/Not Resolved]
  - Dizziness [Recovered/Resolved]
  - Nausea [Recovered/Resolved]
  - Diarrhoea [Recovered/Resolved]
  - Nasal inflammation [Unknown]
  - Nasal septum deviation [Unknown]
